FAERS Safety Report 8628344 (Version 2)
Quarter: 2013Q1

REPORT INFORMATION
  Report Type: Spontaneous
  Country: DE (occurrence: DE)
  Receive Date: 20120621
  Receipt Date: 20130312
  Transmission Date: 20140127
  Serious: No
  Sender: FDA-Public Use
  Company Number: DE-ELI_LILLY_AND_COMPANY-DE201206004946

PATIENT
  Sex: Male

DRUGS (2)
  1. FORSTEO [Suspect]
     Indication: OSTEOPOROSIS
     Dosage: UNK, QD
     Route: 058
     Dates: start: 20110916
  2. PREDNISOLON [Concomitant]
     Dosage: UNK
     Route: 065

REACTIONS (4)
  - Arthritis [Recovering/Resolving]
  - Viral infection [Not Recovered/Not Resolved]
  - Malaise [Recovered/Resolved]
  - Pain [Recovering/Resolving]
